FAERS Safety Report 16964288 (Version 1)
Quarter: 2019Q4

REPORT INFORMATION
  Report Type: Spontaneous
  Country: US (occurrence: US)
  Receive Date: 20191026
  Receipt Date: 20191026
  Transmission Date: 20200122
  Serious: No
  Sender: FDA-Public Use
  Company Number: None

PATIENT
  Age: 66 Year
  Sex: Male
  Weight: 128.25 kg

DRUGS (1)
  1. GABAPENTIN 800MG [Suspect]
     Active Substance: GABAPENTIN
     Indication: FIBROMYALGIA
     Dosage: ?          QUANTITY:1 TABLET(S);?
     Route: 048
     Dates: start: 20191014, end: 20191025

REACTIONS (4)
  - Drug ineffective [None]
  - Product substitution issue [None]
  - Pain [None]
  - Middle insomnia [None]

NARRATIVE: CASE EVENT DATE: 20191026
